FAERS Safety Report 6677197-6 (Version None)
Quarter: 2010Q2

REPORT INFORMATION
  Report Type: 
  Country: None (occurrence: None)
  Receive Date: 20100412
  Receipt Date: 20100326
  Transmission Date: 20101027
  Serious: No
  Sender: FDA-Public Use
  Company Number: US-B.I. PHARMACEUTICALS,INC./RIDGEFIELD-2010-BP-03535BP

PATIENT
  Age: 62 Year
  Sex: Female

DRUGS (5)
  1. AGGRENOX [Suspect]
     Indication: DIALYSIS
     Route: 048
     Dates: start: 20100317, end: 20100325
  2. XANAX [Concomitant]
     Indication: NERVOUSNESS
  3. ANTIVERT [Concomitant]
     Indication: VERTIGO
  4. METOPROLOL TARTRATE [Concomitant]
     Indication: HYPERTENSION
  5. DIALYSIS [Concomitant]
     Indication: RENAL NEOPLASM

REACTIONS (5)
  - ABDOMINAL DISTENSION [None]
  - DYSPNOEA [None]
  - ERUCTATION [None]
  - FLATULENCE [None]
  - WEIGHT DECREASED [None]
